FAERS Safety Report 9592233 (Version 1)
Quarter: 2013Q4

REPORT INFORMATION
  Report Type: Spontaneous
  Country: BR (occurrence: BR)
  Receive Date: 20131004
  Receipt Date: 20131004
  Transmission Date: 20140711
  Serious: Yes (Hospitalization, Other)
  Sender: FDA-Public Use
  Company Number: BR-BRISTOL-MYERS SQUIBB COMPANY-19455732

PATIENT
  Age: 58 Year
  Sex: Female
  Weight: 68 kg

DRUGS (7)
  1. COUMADIN [Suspect]
     Indication: CEREBROVASCULAR ACCIDENT
     Dosage: TABLET SPLIT TO 2.5 MG
     Route: 048
     Dates: start: 200803, end: 20130830
  2. HIDANTAL [Concomitant]
     Dosage: INTERRUPTED IN 2012
  3. RITMONORM [Concomitant]
     Indication: ATRIAL FIBRILLATION
  4. AMITRIPTYLINE [Concomitant]
     Indication: DEPRESSION
  5. AMITRIPTYLINE [Concomitant]
     Indication: CONVULSION
  6. TRYPTANOL [Concomitant]
     Indication: CONVULSION
  7. TRYPTANOL [Concomitant]
     Indication: DEPRESSION

REACTIONS (3)
  - Tendon injury [Unknown]
  - Hernia [Unknown]
  - Pancreatitis [Unknown]
